FAERS Safety Report 5739312-8 (Version None)
Quarter: 2008Q2

REPORT INFORMATION
  Report Type: 
  Country: None (occurrence: None)
  Receive Date: 20080512
  Receipt Date: 20080512
  Transmission Date: 20081010
  Serious: Yes (Hospitalization)
  Sender: FDA-Public Use
  Company Number: None

PATIENT
  Sex: Female
  Weight: 7.7 kg

DRUGS (7)
  1. CARBOPLATIN [Suspect]
     Dosage: 205 MG
  2. CYCLOPHOSPHAMIDE [Suspect]
     Dosage: 1252 MG
  3. DOXORUBICIN HYDROCHLORIDE [Suspect]
     Dosage: 22 MG
  4. ETOPOSIDE [Suspect]
     Dosage: 205 MG
  5. G-CSF (FILGRASTIM, AMGEN) [Suspect]
     Dosage: 1.55 MG
  6. MESNA [Suspect]
     Dosage: 70 MG
  7. VINCRISTINE SULFATE [Suspect]
     Dosage: .6 MG

REACTIONS (3)
  - CAECITIS [None]
  - FEBRILE NEUTROPENIA [None]
  - LOWER RESPIRATORY TRACT INFECTION FUNGAL [None]
